FAERS Safety Report 22911768 (Version 4)
Quarter: 2023Q4

REPORT INFORMATION
  Report Type: Report from Study
  Country: US (occurrence: US)
  Receive Date: 20230906
  Receipt Date: 20231024
  Transmission Date: 20240110
  Serious: Yes (Hospitalization, Other)
  Sender: FDA-Public Use
  Company Number: US-INSMED, INC.-2023-03342-US

PATIENT

DRUGS (2)
  1. ARIKAYCE [Suspect]
     Active Substance: AMIKACIN
     Indication: Mycobacterium avium complex infection
     Dosage: 590 MILLIGRAM, QD
     Route: 055
     Dates: start: 20230822, end: 20230823
  2. ARIKAYCE [Suspect]
     Active Substance: AMIKACIN
     Dosage: 590 MILLIGRAM
     Route: 055
     Dates: start: 20230826, end: 20230911

REACTIONS (12)
  - Hospitalisation [Unknown]
  - Deafness [Not Recovered/Not Resolved]
  - Somnolence [Unknown]
  - Confusional state [Not Recovered/Not Resolved]
  - Confusional state [Recovered/Resolved]
  - Drug intolerance [Not Recovered/Not Resolved]
  - Tremor [Unknown]
  - Unevaluable event [Unknown]
  - Cough [Not Recovered/Not Resolved]
  - Feeling abnormal [Unknown]
  - Malaise [Not Recovered/Not Resolved]
  - Therapy interrupted [Unknown]

NARRATIVE: CASE EVENT DATE: 20230101
